FAERS Safety Report 14641932 (Version 1)
Quarter: 2018Q1

REPORT INFORMATION
  Report Type: Spontaneous
  Country: US (occurrence: US)
  Receive Date: 20180315
  Receipt Date: 20180315
  Transmission Date: 20180509
  Serious: Yes (Other)
  Sender: FDA-Public Use
  Company Number: US-SA-2018SA067989

PATIENT
  Age: 64 Year
  Sex: Female

DRUGS (4)
  1. NIVOLUMAB [Concomitant]
     Active Substance: NIVOLUMAB
  2. TAXOTERE [Suspect]
     Active Substance: DOCETAXEL
     Indication: ADENOCARCINOMA
     Route: 051
  3. ZOMETA [Concomitant]
     Active Substance: ZOLEDRONIC ACID
  4. RAMUCIRUMAB [Concomitant]
     Active Substance: RAMUCIRUMAB

REACTIONS (9)
  - Fatigue [Unknown]
  - Therapeutic response decreased [Unknown]
  - Escherichia infection [Unknown]
  - Urinary tract infection [Unknown]
  - Atrial fibrillation [Unknown]
  - Musculoskeletal pain [Unknown]
  - Malaise [Unknown]
  - Malignant neoplasm progression [Unknown]
  - Bone pain [Unknown]
